FAERS Safety Report 20502038 (Version 1)
Quarter: 2022Q1

REPORT INFORMATION
  Report Type: Report from Study
  Country: GB (occurrence: GB)
  Receive Date: 20220222
  Receipt Date: 20220222
  Transmission Date: 20220424
  Serious: Yes (Life-Threatening, Disabling, Other)
  Sender: FDA-Public Use
  Company Number: GB-MYLANLABS-2022M1012909

PATIENT
  Sex: Female

DRUGS (2)
  1. ARIPIPRAZOLE [Suspect]
     Active Substance: ARIPIPRAZOLE
     Indication: Product used for unknown indication
     Dosage: UNK
     Dates: start: 2016
  2. FOLIC ACID [Concomitant]
     Active Substance: FOLIC ACID
     Indication: Vitamin supplementation
     Dosage: UNK

REACTIONS (6)
  - Confusional state [Not Recovered/Not Resolved]
  - Metabolic acidosis [Unknown]
  - Visual impairment [Unknown]
  - Dizziness [Unknown]
  - Seizure [Unknown]
  - Maternal exposure during pregnancy [Unknown]
